FAERS Safety Report 8370370-0 (Version None)
Quarter: 2012Q1

REPORT INFORMATION
  Report Type: 
  Country: None (occurrence: None)
  Receive Date: 20120323
  Receipt Date: 20111128
  Transmission Date: 20120608
  Serious: Yes (Other)
  Sender: FDA-Public Use
  Company Number: 163-21880-11081206

PATIENT
  Age: 62 Year
  Sex: Male
  Weight: 81.6475 kg

DRUGS (15)
  1. GLUCOSAMINE [Concomitant]
  2. VELCADE [Concomitant]
  3. CRESTOR [Concomitant]
  4. ASPIRIN [Concomitant]
  5. ZOMETA [Concomitant]
  6. CALCIUM [Concomitant]
  7. MULTI-VITAMINS [Concomitant]
  8. COUMADIN [Concomitant]
  9. REVLIMID [Suspect]
     Indication: MULTIPLE MYELOMA
     Dosage: SEE IMAGE
     Route: 048
     Dates: start: 20110901
  10. REVLIMID [Suspect]
     Indication: MULTIPLE MYELOMA
     Dosage: SEE IMAGE
     Route: 048
     Dates: start: 20110714
  11. FISH OIL [Concomitant]
  12. NEURONTIN [Concomitant]
  13. LISINOPRIL [Concomitant]
  14. DEXILANT [Concomitant]
  15. VALTREX [Concomitant]

REACTIONS (3)
  - EPIDIDYMITIS [None]
  - STEVENS-JOHNSON SYNDROME [None]
  - VISION BLURRED [None]
